FAERS Safety Report 8447338-9 (Version None)
Quarter: 2012Q2

REPORT INFORMATION
  Report Type: 
  Country: None (occurrence: None)
  Receive Date: 20120619
  Receipt Date: 20120615
  Transmission Date: 20120825
  Serious: Yes (Death, Other)
  Sender: FDA-Public Use
  Company Number: PHFR2012GB003465

PATIENT
  Sex: Male

DRUGS (2)
  1. CLOZARIL [Suspect]
     Indication: SCHIZOPHRENIA
     Route: 048
     Dates: start: 20020129
  2. ANTIHYPERTENSIVES [Concomitant]
     Dosage: UNK UKN, UNK

REACTIONS (8)
  - WEIGHT INCREASED [None]
  - LOSS OF CONSCIOUSNESS [None]
  - DEATH [None]
  - CHEST PAIN [None]
  - HEAD INJURY [None]
  - AORTIC ANEURYSM [None]
  - FALL [None]
  - CARDIAC DISORDER [None]
